FAERS Safety Report 7611098-1 (Version None)
Quarter: 2011Q3

REPORT INFORMATION
  Report Type: 
  Country: None (occurrence: None)
  Receive Date: 20110715
  Receipt Date: 20110708
  Transmission Date: 20111222
  Serious: Yes (Other)
  Sender: FDA-Public Use
  Company Number: US-BAYER-2011-041965

PATIENT
  Age: 34 Year
  Sex: Female

DRUGS (3)
  1. ULTRAM [Concomitant]
     Indication: EAR INFECTION
     Dosage: UNK
     Dates: start: 20110511
  2. BOMIM [Concomitant]
     Indication: HYPERTENSION
     Dosage: 40/125 X3Y ONCE
  3. AVELOX [Suspect]
     Indication: EAR INFECTION
     Dosage: 400 MG, QD
     Route: 048
     Dates: start: 20110511, end: 20110512

REACTIONS (3)
  - AGEUSIA [None]
  - HYPOAESTHESIA [None]
  - VIITH NERVE PARALYSIS [None]
